FAERS Safety Report 25352622 (Version 4)
Quarter: 2025Q4

REPORT INFORMATION
  Report Type: Spontaneous
  Country: JP (occurrence: JP)
  Receive Date: 20250523
  Receipt Date: 20251014
  Transmission Date: 20260118
  Serious: Yes (Other)
  Sender: MERCK SHARP & DOHME LLC
  Company Number: JP-009507513-2287543

PATIENT
  Age: 8 Decade
  Sex: Female

DRUGS (4)
  1. KEYTRUDA [Suspect]
     Active Substance: PEMBROLIZUMAB
     Indication: Renal cell carcinoma
     Dosage: 200MG ONCE EVERY 3WEEKS, ADMINISTRATION PERIOD: FROM 13-MAR-2025 (CONTINUED)
     Route: 041
     Dates: start: 20250313
  2. LENVIMA [Suspect]
     Active Substance: LENVATINIB
     Indication: Renal cell carcinoma
     Dosage: ADMINISTRATION OF LENVIMA WAS REDUCED TO 4 MG, STRENGTH: 10 MG
     Route: 048
     Dates: start: 2025
  3. LENVIMA [Suspect]
     Active Substance: LENVATINIB
     Indication: Renal cell carcinoma
     Dosage: 14MG X ONCE/1 DAY, ADMINISTRATION PERIOD: FROM 13-MAR-2025 TO EARLY MAY 2025 (DISCONTINUED), STRE...
     Route: 048
     Dates: start: 20250313, end: 2025
  4. LENVIMA [Suspect]
     Active Substance: LENVATINIB
     Indication: Renal cell carcinoma
     Dosage: 10MG X ONCE/1 DAY, STRENGTH: 10 MG
     Route: 048
     Dates: start: 2025, end: 2025

REACTIONS (3)
  - Platelet count decreased [Recovered/Resolved]
  - Therapy partial responder [Unknown]
  - Hypertension [Recovered/Resolved]

NARRATIVE: CASE EVENT DATE: 20250101
